FAERS Safety Report 6593932-X (Version None)
Quarter: 2010Q1

REPORT INFORMATION
  Report Type: 
  Country: None (occurrence: None)
  Receive Date: 20100222
  Receipt Date: 20100210
  Transmission Date: 20100710
  Serious: Yes (Death, Other)
  Sender: FDA-Public Use
  Company Number: AU-PFIZER INC-2010018570

PATIENT

DRUGS (1)
  1. VORICONAZOLE [Suspect]
     Indication: ASPERGILLOSIS
     Dosage: 200 MG, 2X/DAY
     Route: 048

REACTIONS (3)
  - DEATH [None]
  - MYOSITIS [None]
  - RHABDOMYOLYSIS [None]
